FAERS Safety Report 14572224 (Version 1)
Quarter: 2018Q1

REPORT INFORMATION
  Report Type: Report from Study
  Country: GB (occurrence: GB)
  Receive Date: 20180226
  Receipt Date: 20180226
  Transmission Date: 20180509
  Serious: Yes (Other)
  Sender: FDA-Public Use
  Company Number: GB-JNJFOC-20180233285

PATIENT
  Sex: Female

DRUGS (1)
  1. STELARA [Suspect]
     Active Substance: USTEKINUMAB
     Indication: PSORIASIS
     Route: 058
     Dates: start: 20150918

REACTIONS (3)
  - Peripheral swelling [Unknown]
  - Lower respiratory tract infection [Unknown]
  - Joint swelling [Unknown]

NARRATIVE: CASE EVENT DATE: 2018
